FAERS Safety Report 5746897-4 (Version None)
Quarter: 2008Q2

REPORT INFORMATION
  Report Type: 
  Country: None (occurrence: None)
  Receive Date: 20080522
  Receipt Date: 20080513
  Transmission Date: 20081010
  Serious: Yes (Hospitalization)
  Sender: FDA-Public Use
  Company Number: US-PFIZER INC-2008040844

PATIENT
  Age: 55 Year
  Sex: Male
  Weight: 77.1 kg

DRUGS (6)
  1. SUTENT [Suspect]
     Indication: ANGIOSARCOMA
     Route: 048
  2. TOPROL-XL [Concomitant]
  3. PRILOSEC [Concomitant]
  4. ATIVAN [Concomitant]
  5. ALDACTAZIDE [Concomitant]
     Dosage: TEXT:25/25
  6. LIPOIC ACID [Concomitant]

REACTIONS (1)
  - ARRHYTHMIA [None]
